FAERS Safety Report 6594707-8 (Version None)
Quarter: 2010Q1

REPORT INFORMATION
  Report Type: 
  Country: None (occurrence: None)
  Receive Date: 20100222
  Receipt Date: 20100212
  Transmission Date: 20100710
  Serious: Yes (Disabling)
  Sender: FDA-Public Use
  Company Number: NL-AMGEN-US393920

PATIENT
  Sex: Male

DRUGS (2)
  1. ENBREL [Suspect]
     Indication: RHEUMATOID ARTHRITIS
     Route: 058
     Dates: start: 20090101
  2. METHOTREXATE [Concomitant]
     Route: 065

REACTIONS (3)
  - MUSCULOSKELETAL STIFFNESS [None]
  - SCAB [None]
  - VISION BLURRED [None]
